FAERS Safety Report 17479779 (Version 1)
Quarter: 2020Q1

REPORT INFORMATION
  Report Type: Spontaneous
  Country: US (occurrence: US)
  Receive Date: 20200228
  Receipt Date: 20200228
  Transmission Date: 20200409
  Serious: No
  Sender: FDA-Public Use
  Company Number: US-BAUSCH-BL-2020-003830

PATIENT
  Age: 80 Year
  Sex: Male

DRUGS (2)
  1. FLUOROURACIL. [Suspect]
     Active Substance: FLUOROURACIL
     Indication: PRODUCT USED FOR UNKNOWN INDICATION
     Dosage: APPLIED TO FACE AND HEAD AND STOPPED APPROXIMATELY AFTER 5 DAYS
     Route: 061
  2. FLUOROURACIL. [Suspect]
     Active Substance: FLUOROURACIL
     Dosage: APPLIED TO OTHER AREAS FOR A TOTAL OF 8 DAYS
     Route: 061

REACTIONS (4)
  - Pigmentation disorder [Unknown]
  - Dry skin [Not Recovered/Not Resolved]
  - Face injury [Not Recovered/Not Resolved]
  - Erythema [Not Recovered/Not Resolved]
